FAERS Safety Report 13386183 (Version 1)
Quarter: 2017Q1

REPORT INFORMATION
  Report Type: Spontaneous
  Country: US (occurrence: US)
  Receive Date: 20170330
  Receipt Date: 20170330
  Transmission Date: 20170429
  Serious: No
  Sender: FDA-Public Use
  Company Number: US-AUROBINDO-AUR-APU-2016-14013

PATIENT
  Sex: Female
  Weight: 68.95 kg

DRUGS (3)
  1. LYRICA [Suspect]
     Active Substance: PREGABALIN
     Indication: NEUROPATHY PERIPHERAL
     Dosage: 75MG CAPSULE, 1 IN THE MORNING, 1 IN THE AFTERNOON AND ONE IN THE EVENING
     Route: 065
     Dates: start: 201610
  2. LYRICA [Suspect]
     Active Substance: PREGABALIN
     Dosage: UNK
  3. GABAPENTIN CAPSULES 300 MG [Suspect]
     Active Substance: GABAPENTIN
     Indication: NEUROPATHY PERIPHERAL
     Dosage: 300 MG, AT BED TIME
     Route: 048
     Dates: start: 2016, end: 201610

REACTIONS (4)
  - Drug dose omission [Recovered/Resolved]
  - Drug ineffective [Recovered/Resolved]
  - Wrong patient received medication [Not Recovered/Not Resolved]
  - Off label use [Not Recovered/Not Resolved]

NARRATIVE: CASE EVENT DATE: 2016
